FAERS Safety Report 7460528-7 (Version None)
Quarter: 2011Q2

REPORT INFORMATION
  Report Type: 
  Country: None (occurrence: None)
  Receive Date: 20110419
  Receipt Date: 20110307
  Transmission Date: 20111010
  Serious: Yes (Other)
  Sender: FDA-Public Use
  Company Number: 2011027764

PATIENT
  Age: 26 Year
  Sex: Male

DRUGS (1)
  1. HUMATE-P [Suspect]
     Indication: FACTOR VIII DEFICIENCY
     Dosage: 2000 IU, INTRAVENOUS
     Route: 042
     Dates: start: 20110206, end: 20110301

REACTIONS (4)
  - VISUAL IMPAIRMENT [None]
  - DIZZINESS [None]
  - TUNNEL VISION [None]
  - HYPERHIDROSIS [None]
